FAERS Safety Report 9692469 (Version 1)
Quarter: 2013Q4

REPORT INFORMATION
  Report Type: Spontaneous
  Country: US (occurrence: US)
  Receive Date: 20131118
  Receipt Date: 20131118
  Transmission Date: 20140711
  Serious: No
  Sender: FDA-Public Use
  Company Number: US-PFIZER INC-2013327265

PATIENT
  Age: 52 Year
  Sex: Female
  Weight: 59.86 kg

DRUGS (2)
  1. XELJANZ [Suspect]
     Indication: RHEUMATOID ARTHRITIS
     Dosage: 5 MG, 2X/DAY
     Route: 048
     Dates: start: 20131017
  2. PREDNISONE [Suspect]
     Dosage: 5 MG, UNK

REACTIONS (2)
  - Weight increased [Unknown]
  - Overweight [Unknown]
